FAERS Safety Report 8470917-X (Version None)
Quarter: 2012Q2

REPORT INFORMATION
  Report Type: 
  Country: None (occurrence: None)
  Receive Date: 20120627
  Receipt Date: 20120618
  Transmission Date: 20120825
  Serious: Yes (Other)
  Sender: FDA-Public Use
  Company Number: US-JNJFOC-20120609866

PATIENT
  Sex: Female
  Weight: 86.18 kg

DRUGS (4)
  1. HUMIRA [Concomitant]
     Indication: PSORIATIC ARTHROPATHY
     Route: 058
     Dates: start: 20120601
  2. REMICADE [Suspect]
     Indication: PSORIATIC ARTHROPATHY
     Route: 042
     Dates: start: 20050101, end: 20120601
  3. REMICADE [Suspect]
     Indication: CROHN'S DISEASE
     Route: 042
     Dates: start: 20050101, end: 20120601
  4. HUMIRA [Concomitant]
     Indication: CROHN'S DISEASE
     Route: 058
     Dates: start: 20120601

REACTIONS (5)
  - CROHN'S DISEASE [None]
  - PSORIATIC ARTHROPATHY [None]
  - ADRENAL DISORDER [None]
  - DRUG EFFECT DECREASED [None]
  - THYROID DISORDER [None]
